FAERS Safety Report 8241521-3 (Version None)
Quarter: 2012Q1

REPORT INFORMATION
  Report Type: 
  Country: None (occurrence: None)
  Receive Date: 20120314
  Receipt Date: 20100505
  Transmission Date: 20120608
  Serious: No
  Sender: FDA-Public Use
  Company Number: PHHY2010US20406

PATIENT
  Sex: Female

DRUGS (1)
  1. FANAPT [Suspect]
     Indication: SCHIZOPHRENIA
     Dosage: 6 MG, BID, ORAL
     Route: 048

REACTIONS (6)
  - URINARY TRACT DISORDER [None]
  - NAUSEA [None]
  - RHINORRHOEA [None]
  - URINARY INCONTINENCE [None]
  - DIARRHOEA [None]
  - VOMITING [None]
